FAERS Safety Report 20652084 (Version 1)
Quarter: 2022Q1

REPORT INFORMATION
  Report Type: Report from Study
  Country: EG (occurrence: EG)
  Receive Date: 20220330
  Receipt Date: 20220330
  Transmission Date: 20220423
  Serious: Yes (Other)
  Sender: FDA-Public Use
  Company Number: EG-NOVARTISPH-NVSC2022EG063831

PATIENT
  Age: 77 Year
  Sex: Female

DRUGS (9)
  1. ENTRESTO [Suspect]
     Active Substance: SACUBITRIL\VALSARTAN
     Indication: Cardiac failure
     Dosage: 1 DOSAGE FORM, BID
     Route: 048
     Dates: start: 20210316, end: 20220315
  2. ENTRESTO [Suspect]
     Active Substance: SACUBITRIL\VALSARTAN
     Dosage: 0.5 DOSAGE FORM (100 MG), BID
     Route: 048
     Dates: start: 20220308, end: 20220314
  3. ENTRESTO [Suspect]
     Active Substance: SACUBITRIL\VALSARTAN
     Dosage: 0.5 DOSAGE FORM (100 MG), BID
     Route: 048
     Dates: start: 20220317
  4. CONTROLOC [Concomitant]
     Active Substance: PANTOPRAZOLE SODIUM
     Indication: Abdominal discomfort
     Dosage: 1 DOSAGE FORM, QD, IN MORNING BEFORE BREAKFAST
     Route: 048
     Dates: start: 20220316
  5. ITOPRIDE [Concomitant]
     Active Substance: ITOPRIDE
     Indication: Gastrointestinal disorder
     Dosage: 1 DOSAGE FORM, TID, BEFORE MEALS
     Route: 048
     Dates: start: 20220316
  6. JUSPRIN [Concomitant]
     Indication: Anticoagulant therapy
     Dosage: 1 DOSAGE FORM, QD, START DATE: MORE THAN 3 YEARS AGO AND STILL
     Route: 048
  7. CARFALONE [Concomitant]
     Indication: Product used for unknown indication
     Dosage: 0.5 DOSAGE FORM, QD (STARTED MORE THAN 3 YEARS AGO)
     Route: 048
  8. DILATROL [Concomitant]
     Indication: Hypertension
     Dosage: 25 MG, BID (ONE IN THE MORNING AND ONE IN THE NIGHT)
     Route: 065
  9. DILATROL [Concomitant]
     Indication: Cardiac failure
     Dosage: 6.25 MG, BID (ONE IN THE MORNING AND ONE IN THE NIGHT) (TWO OR THREE YEARS AGO-ONGOING)
     Route: 065

REACTIONS (19)
  - Cardiovascular insufficiency [Recovering/Resolving]
  - Abdominal pain upper [Recovering/Resolving]
  - Insomnia [Recovering/Resolving]
  - Depressed mood [Recovering/Resolving]
  - Heart rate irregular [Recovering/Resolving]
  - Fatigue [Recovering/Resolving]
  - Abdominal distension [Not Recovered/Not Resolved]
  - Dyspepsia [Not Recovered/Not Resolved]
  - Enuresis [Not Recovered/Not Resolved]
  - Dyspnoea [Recovering/Resolving]
  - Gastritis [Recovering/Resolving]
  - Urinary tract inflammation [Recovering/Resolving]
  - Nasopharyngitis [Recovered/Resolved]
  - Inflammation [Recovering/Resolving]
  - Gait inability [Recovering/Resolving]
  - Cough [Recovered/Resolved]
  - Hypotension [Recovering/Resolving]
  - Wrong technique in product usage process [Not Recovered/Not Resolved]
  - Product dispensing issue [Unknown]

NARRATIVE: CASE EVENT DATE: 20220101
